FAERS Safety Report 17520191 (Version 2)
Quarter: 2020Q1

REPORT INFORMATION
  Report Type: Report from Study
  Country: US (occurrence: US)
  Receive Date: 20200310
  Receipt Date: 20200312
  Transmission Date: 20200409
  Serious: Yes (Hospitalization)
  Sender: FDA-Public Use
  Company Number: US-BAUSCH-BL-2020-007467

PATIENT
  Age: 69 Year
  Sex: Male

DRUGS (1)
  1. XIFAXAN [Suspect]
     Active Substance: RIFAXIMIN
     Indication: LIVER DISORDER
     Dosage: AROUND OCT/2019 OR NOV/2019
     Route: 065
     Dates: start: 2019

REACTIONS (6)
  - Diabetes mellitus [Unknown]
  - Liver disorder [Unknown]
  - Inability to afford medication [Unknown]
  - Hypotension [Unknown]
  - Fall [Unknown]
  - Arthralgia [Not Recovered/Not Resolved]

NARRATIVE: CASE EVENT DATE: 202002
